FAERS Safety Report 13815401 (Version 3)
Quarter: 2017Q4

REPORT INFORMATION
  Report Type: Spontaneous
  Country: US (occurrence: US)
  Receive Date: 20170731
  Receipt Date: 20171204
  Transmission Date: 20180320
  Serious: Yes (Other)
  Sender: FDA-Public Use
  Company Number: US-PFIZER INC-2017328948

PATIENT
  Age: 68 Year
  Sex: Female

DRUGS (2)
  1. METHOTREXATE. [Concomitant]
     Active Substance: METHOTREXATE
     Dosage: UNK
  2. XELJANZ [Suspect]
     Active Substance: TOFACITINIB CITRATE
     Dosage: 5 MG, TWICE A DAY

REACTIONS (6)
  - Upper limb fracture [Unknown]
  - Nerve injury [Unknown]
  - Fall [Unknown]
  - Arthralgia [Unknown]
  - Arthritis [Unknown]
  - Joint dislocation [Unknown]

NARRATIVE: CASE EVENT DATE: 2017
